FAERS Safety Report 25206533 (Version 1)
Quarter: 2025Q2

REPORT INFORMATION
  Report Type: Spontaneous
  Country: FR (occurrence: FR)
  Receive Date: 20250417
  Receipt Date: 20250417
  Transmission Date: 20250716
  Serious: Yes (Hospitalization)
  Sender: GLAXOSMITHKLINE
  Company Number: None

PATIENT

DRUGS (2)
  1. LAMOTRIGINE [Suspect]
     Active Substance: LAMOTRIGINE
     Indication: Product prescribing error
     Route: 048
     Dates: start: 20250404, end: 20250405
  2. QUETIAPINE [Suspect]
     Active Substance: QUETIAPINE
     Indication: Product prescribing error
     Route: 048
     Dates: start: 20250404, end: 20250405

REACTIONS (5)
  - Dysphagia [Recovered/Resolved]
  - Somnolence [Recovered/Resolved]
  - Overdose [Unknown]
  - Product prescribing error [Unknown]
  - Wrong dose [Unknown]

NARRATIVE: CASE EVENT DATE: 20250404
